FAERS Safety Report 11165253 (Version 1)
Quarter: 2015Q2

REPORT INFORMATION
  Report Type: Spontaneous
  Country: US (occurrence: US)
  Receive Date: 20150604
  Receipt Date: 20150604
  Transmission Date: 20150821
  Serious: No
  Sender: FDA-Public Use
  Company Number: US-BAYER-2015-273527

PATIENT
  Age: 67 Year
  Sex: Male

DRUGS (1)
  1. FINACEA [Suspect]
     Active Substance: AZELAIC ACID
     Indication: ROSACEA
     Dosage: ONCE DAILY ON NOSE
     Route: 061

REACTIONS (3)
  - Blister [None]
  - Application site pain [None]
  - Erythema [None]
